FAERS Safety Report 10653916 (Version 1)
Quarter: 2014Q4

REPORT INFORMATION
  Report Type: Spontaneous
  Country: FR (occurrence: FR)
  Receive Date: 20141216
  Receipt Date: 20141216
  Transmission Date: 20150529
  Serious: Yes (Other)
  Sender: FDA-Public Use
  Company Number: PHHY2014FR162970

PATIENT
  Age: 50 Year
  Sex: Male

DRUGS (3)
  1. VOLTARENE [Suspect]
     Active Substance: DICLOFENAC SODIUM
     Indication: CERVICOBRACHIAL SYNDROME
     Dosage: 75 MG, PRN
     Route: 048
     Dates: start: 20140917, end: 20140920
  2. FLUIMUCIL [Concomitant]
     Active Substance: ACETYLCYSTEINE
     Indication: PRODUCT USED FOR UNKNOWN INDICATION
     Route: 065
  3. EFFERALGAN CODEINE [Suspect]
     Active Substance: ACETAMINOPHEN\CODEINE PHOSPHATE
     Indication: CERVICOBRACHIAL SYNDROME
     Dosage: UNK OT, PRN
     Route: 048
     Dates: start: 20140917, end: 20140920

REACTIONS (3)
  - Hepatocellular injury [Recovered/Resolved]
  - Overdose [Recovered/Resolved]
  - Medication error [Recovered/Resolved]

NARRATIVE: CASE EVENT DATE: 20140920
